FAERS Safety Report 24736228 (Version 1)
Quarter: 2024Q4

REPORT INFORMATION
  Report Type: Spontaneous
  Country: CA (occurrence: CA)
  Receive Date: 20241216
  Receipt Date: 20241216
  Transmission Date: 20250114
  Serious: Yes (Death)
  Sender: TEVA
  Company Number: CA-TEVA-VS-3275911

PATIENT
  Age: 43 Year
  Sex: Male

DRUGS (14)
  1. CYCLOSPORINE [Suspect]
     Active Substance: CYCLOSPORINE
     Indication: Graft versus host disease in gastrointestinal tract
     Dosage: DOSE FORM : NOT SPECIFIED
     Route: 065
  2. VALGANCICLOVIR [Suspect]
     Active Substance: VALGANCICLOVIR
     Indication: Cytomegalovirus infection reactivation
     Dosage: DOSE FORM : NOT SPECIFIED
     Route: 065
  3. RITUXIMAB [Suspect]
     Active Substance: RITUXIMAB
     Indication: Epstein-Barr viraemia
     Route: 065
  4. GANCICLOVIR [Suspect]
     Active Substance: GANCICLOVIR
     Indication: Encephalitis cytomegalovirus
     Dosage: DOSE FORM : POWDER FOR SOLUTION INTRAVENOUS
     Route: 042
  5. GANCICLOVIR [Suspect]
     Active Substance: GANCICLOVIR
     Indication: Encephalitis cytomegalovirus
     Dosage: DOSE FORM : POWDER FOR SOLUTION INTRAVENOUS
     Route: 042
  6. PREVYMIS [Concomitant]
     Active Substance: LETERMOVIR
     Indication: Product used for unknown indication
     Route: 065
  7. CYTOGAM [Suspect]
     Active Substance: HUMAN CYTOMEGALOVIRUS IMMUNE GLOBULIN
     Indication: Encephalitis cytomegalovirus
     Dosage: DOSE FORM : SOLUTION INTRAVENOUS
     Route: 037
  8. CYTOGAM [Suspect]
     Active Substance: HUMAN CYTOMEGALOVIRUS IMMUNE GLOBULIN
     Indication: Encephalitis cytomegalovirus
     Dosage: DOSE FORM : SOLUTION INTRAVENOUS
     Route: 037
  9. BUDESONIDE [Suspect]
     Active Substance: BUDESONIDE
     Indication: Graft versus host disease in gastrointestinal tract
     Dosage: DOSE FORM : NOT SPECIFIED
     Route: 065
  10. THYMOCYTE IMMUNE GLOBULIN NOS [Suspect]
     Active Substance: THYMOCYTE IMMUNE GLOBULIN NOS
     Indication: Prophylaxis against graft versus host disease
     Dosage: DOSE FORM : NOT SPECIFIED
     Route: 065
  11. THYMOCYTE IMMUNE GLOBULIN NOS [Suspect]
     Active Substance: THYMOCYTE IMMUNE GLOBULIN NOS
     Indication: Prophylaxis against graft versus host disease
     Dosage: DOSE FORM : NOT SPECIFIED
     Route: 065
  12. FOSCARNET SODIUM [Suspect]
     Active Substance: FOSCARNET SODIUM
     Indication: Product used for unknown indication
     Dosage: DOSE FORM : NOT SPECIFIED
     Route: 042
  13. FLUDARABINE [Concomitant]
     Active Substance: FLUDARABINE PHOSPHATE
     Indication: Product used for unknown indication
     Dosage: DOSE FORM : NOT SPECIFIED
     Route: 065
  14. CYCLOPHOSPHAMIDE [Suspect]
     Active Substance: CYCLOPHOSPHAMIDE
     Indication: Product used for unknown indication
     Dosage: DOSE FORM : NOT SPECIFIED
     Route: 065

REACTIONS (14)
  - Off label use [Fatal]
  - Cystitis haemorrhagic [Fatal]
  - Pancytopenia [Fatal]
  - Nephropathy toxic [Fatal]
  - Lung disorder [Fatal]
  - Epstein-Barr viraemia [Fatal]
  - Myelosuppression [Fatal]
  - Respiratory distress [Fatal]
  - Cytomegalovirus infection reactivation [Fatal]
  - Generalised oedema [Fatal]
  - Acute kidney injury [Fatal]
  - Drug ineffective [Fatal]
  - BK virus infection [Fatal]
  - Cystitis haemorrhagic [Fatal]
